FAERS Safety Report 16377380 (Version 1)
Quarter: 2019Q2

REPORT INFORMATION
  Report Type: Spontaneous
  Country: FI (occurrence: FI)
  Receive Date: 20190531
  Receipt Date: 20190531
  Transmission Date: 20190711
  Serious: Yes (Other)
  Sender: FDA-Public Use
  Company Number: FI-BAUSCH-BL-2019-015453

PATIENT
  Age: 3 Year
  Sex: Female

DRUGS (3)
  1. AMOXICILLIN-CLAVULANIC ACID [Suspect]
     Active Substance: AMOXICILLIN\CLAVULANIC ACID
     Indication: SWELLING
     Route: 065
  2. CLINDAMYCIN. [Suspect]
     Active Substance: CLINDAMYCIN
     Indication: SWELLING
     Dosage: UNK
     Route: 065
  3. AMOXICILLIN-CLAVULANIC ACID [Suspect]
     Active Substance: AMOXICILLIN\CLAVULANIC ACID
     Indication: PRODUCT USE IN UNAPPROVED INDICATION

REACTIONS (4)
  - Atypical mycobacterial infection [Unknown]
  - Swelling [Unknown]
  - Condition aggravated [Unknown]
  - Product use in unapproved indication [Unknown]
